FAERS Safety Report 4524630-1 (Version None)
Quarter: 2004Q4

REPORT INFORMATION
  Report Type: 
  Country: None (occurrence: None)
  Receive Date: 20041117
  Receipt Date: 20030516
  Transmission Date: 20050328
  Serious: Yes (Other)
  Sender: FDA-Public Use
  Company Number: C2003-1231.01

PATIENT
  Age: 73 Year
  Sex: Male

DRUGS (5)
  1. CLOZAPINE [Suspect]
     Indication: PSYCHOTIC DISORDER
     Dosage: 12.5MG HS, THEN 50MG HS, THEN 75MGT HS, ORAL
     Route: 048
     Dates: start: 20030206
  2. DIPYRIDAMOLE/ASPIRIN [Concomitant]
  3. CARBIDOPA AND LEVODOPA [Concomitant]
  4. CARBIDOPA/LEVODOPA CR [Concomitant]
  5. LEVOTHYROXINE SODIUM [Concomitant]

REACTIONS (1)
  - LEUKOPENIA [None]
